FAERS Safety Report 5422143-6 (Version None)
Quarter: 2007Q3

REPORT INFORMATION
  Report Type: 
  Country: None (occurrence: None)
  Receive Date: 20070821
  Receipt Date: 20070821
  Transmission Date: 20080115
  Serious: No
  Sender: FDA-Public Use
  Company Number: None

PATIENT
  Age: 7 Year
  Sex: Female
  Weight: 20.4119 kg

DRUGS (2)
  1. ZYRTEC [Suspect]
     Indication: HYPERSENSITIVITY
     Dosage: 1 TEASPOON DAILY PO
     Route: 048
     Dates: start: 20070715, end: 20070815
  2. ZYRTEC [Suspect]
     Indication: SINUS DISORDER
     Dosage: 1 TEASPOON DAILY PO
     Route: 048
     Dates: start: 20070715, end: 20070815

REACTIONS (7)
  - ABNORMAL BEHAVIOUR [None]
  - AGGRESSION [None]
  - CRYING [None]
  - HUNGER [None]
  - INSOMNIA [None]
  - TREATMENT NONCOMPLIANCE [None]
  - WEIGHT DECREASED [None]
